FAERS Safety Report 17251116 (Version 3)
Quarter: 2025Q4

REPORT INFORMATION
  Report Type: Spontaneous
  Country: EU (occurrence: EU)
  Receive Date: 20200109
  Receipt Date: 20251218
  Transmission Date: 20260117
  Serious: Yes (Hospitalization, Other)
  Sender: AMGEN
  Company Number: EU-ROCHE-2081488

PATIENT
  Age: 47 Year
  Sex: Female
  Weight: 114.7 kg

DRUGS (9)
  1. TRASTUZUMAB [Suspect]
     Active Substance: TRASTUZUMAB
     Indication: Breast cancer metastatic
     Dosage: 1833.6 MILLIGRAM, QWK (611.2 MG, TIW, (SOLUTION FOR INFUSION)
     Route: 042
     Dates: start: 20171221
  2. TRASTUZUMAB [Suspect]
     Active Substance: TRASTUZUMAB
     Dosage: UNK, (SOLUTION FOR INFUSION)
     Route: 042
     Dates: start: 20180408
  3. DOCETAXEL [Suspect]
     Active Substance: DOCETAXEL
     Indication: Breast cancer metastatic
     Dosage: 501.75 MILLIGRAM, QWK (167.25 MG, TIW)
     Route: 042
     Dates: start: 20171221
  4. DOCETAXEL [Suspect]
     Active Substance: DOCETAXEL
     Dosage: 501.75 MILLIGRAM, Q3WK 167.25 MG, TIW
     Route: 042
     Dates: start: 20171222
  5. DOCETAXEL [Suspect]
     Active Substance: DOCETAXEL
     Dosage: UNK
     Route: 042
     Dates: start: 20180405
  6. PERTUZUMAB [Suspect]
     Active Substance: PERTUZUMAB
     Indication: Breast cancer metastatic
     Dosage: 2520 MILLIGRAM, QWK (840 MG, TIW)
     Route: 042
     Dates: start: 20171221
  7. PERTUZUMAB [Suspect]
     Active Substance: PERTUZUMAB
     Dosage: 1260 MILLIGRAM, QWK (420 MG, TIW)
     Route: 042
  8. PERTUZUMAB [Suspect]
     Active Substance: PERTUZUMAB
     Dosage: UNK
     Route: 042
     Dates: start: 20180405
  9. TAMOXIFEN [Suspect]
     Active Substance: TAMOXIFEN
     Indication: Product used for unknown indication
     Dosage: UNK
     Route: 065
     Dates: start: 20171208

REACTIONS (5)
  - Menstruation irregular [Unknown]
  - Heavy menstrual bleeding [Unknown]
  - Muscle spasms [Recovered/Resolved]
  - Arthralgia [Unknown]
  - Off label use [Unknown]

NARRATIVE: CASE EVENT DATE: 20171221
